FAERS Safety Report 16623904 (Version 4)
Quarter: 2019Q4

REPORT INFORMATION
  Report Type: Spontaneous
  Country: GB (occurrence: GB)
  Receive Date: 20190724
  Receipt Date: 20191002
  Transmission Date: 20200122
  Serious: Yes (Other)
  Sender: FDA-Public Use
  Company Number: GB-AUROBINDO-08-AUR-04083

PATIENT
  Age: 68 Year
  Sex: Male
  Weight: 78 kg

DRUGS (18)
  1. BISOPROLOL 5 MG TABLETS [Suspect]
     Active Substance: BISOPROLOL
     Indication: PRODUCT USED FOR UNKNOWN INDICATION
     Dosage: 7 MILLIGRAM, DAILY 2MG IN THE MORNING, 5MG LATER
     Route: 065
  2. ACIPIMOX [Suspect]
     Active Substance: ACIPIMOX
     Dosage: 500 MILLIGRAM, DAILY
     Route: 065
  3. FRUSEMIDE 20 MG TABLETS [Suspect]
     Active Substance: FUROSEMIDE
     Dosage: 160 MILLIGRAM, ONCE A DAY
     Route: 065
  4. PERINDOPRIL [Suspect]
     Active Substance: PERINDOPRIL
     Indication: PRODUCT USED FOR UNKNOWN INDICATION
     Dosage: 2 MILLIGRAM, ONCE A DAY
     Route: 048
  5. ZOTON [Suspect]
     Active Substance: LANSOPRAZOLE
     Indication: PRODUCT USED FOR UNKNOWN INDICATION
     Dosage: 30 MG,ONCE A DAY,
     Route: 065
  6. DIGOXIN. [Suspect]
     Active Substance: DIGOXIN
     Indication: PRODUCT USED FOR UNKNOWN INDICATION
     Dosage: 0.125 MILLIGRAM, DAILY
     Route: 065
  7. DIGOXIN. [Suspect]
     Active Substance: DIGOXIN
     Dosage: 0.13 MILLIGRAM, ONCE A DAY
     Route: 065
  8. AMIODARONE HYDROCHLORIDE 200MG TABLETS [Suspect]
     Active Substance: AMIODARONE HYDROCHLORIDE
     Indication: PRODUCT USED FOR UNKNOWN INDICATION
     Dosage: 200 MILLIGRAM, ONCE A DAY
     Route: 065
  9. ACIPIMOX [Suspect]
     Active Substance: ACIPIMOX
     Indication: PRODUCT USED FOR UNKNOWN INDICATION
     Dosage: 250 MG,TWO TIMES A DAY,(500 MG ONCE A DAY)
     Route: 065
  10. EZETROL [Suspect]
     Active Substance: EZETIMIBE
     Dosage: 10 MILLIGRAM
     Route: 048
  11. BISOPROLOL 5 MG TABLETS [Suspect]
     Active Substance: BISOPROLOL
     Dosage: 7.5 MILLIGRAM, ONCE A DAY
     Route: 065
  12. FRUSEMIDE 20 MG TABLETS [Suspect]
     Active Substance: FUROSEMIDE
     Dosage: 80 MILLIGRAM, TWO TIMES A DAY
     Route: 065
  13. WARFARIN [Concomitant]
     Active Substance: WARFARIN
     Indication: PRODUCT USED FOR UNKNOWN INDICATION
     Dosage: UNK
     Route: 065
  14. EZETROL [Suspect]
     Active Substance: EZETIMIBE
     Indication: PRODUCT USED FOR UNKNOWN INDICATION
     Dosage: 10 MICROCURIE, DAILY
     Route: 048
  15. EZETROL [Suspect]
     Active Substance: EZETIMIBE
     Dosage: 10 MICROGRAM, DAILY
     Route: 065
  16. FRUSEMIDE 20 MG TABLETS [Suspect]
     Active Substance: FUROSEMIDE
     Indication: PRODUCT USED FOR UNKNOWN INDICATION
     Dosage: 120 MILLIGRAM, DAILY
     Route: 065
  17. ASPIRIN. [Suspect]
     Active Substance: ASPIRIN
     Indication: PRODUCT USED FOR UNKNOWN INDICATION
     Dosage: 75 MILLIGRAM, DAILY
     Route: 065
  18. LANSOPRAZOLE. [Suspect]
     Active Substance: LANSOPRAZOLE
     Indication: PRODUCT USED FOR UNKNOWN INDICATION
     Dosage: 30 MILLIGRAM, DAILY
     Route: 065

REACTIONS (16)
  - Dyspnoea [Unknown]
  - Fatigue [Unknown]
  - Feeling abnormal [Unknown]
  - Left ventricular failure [Unknown]
  - Ventricular tachycardia [Unknown]
  - Left ventricular dysfunction [Unknown]
  - Paraesthesia [Unknown]
  - Oedema peripheral [Unknown]
  - Dissociation [Unknown]
  - Venous pressure jugular increased [Unknown]
  - Cardiac murmur [Unknown]
  - Drug ineffective [Unknown]
  - Atrial fibrillation [Unknown]
  - Dyspnoea exertional [Unknown]
  - Oedema [Unknown]
  - Dizziness [Unknown]
